FAERS Safety Report 9912400 (Version 2)
Quarter: 2014Q2

REPORT INFORMATION
  Report Type: Spontaneous
  Country: US (occurrence: US)
  Receive Date: 20140220
  Receipt Date: 20140620
  Transmission Date: 20141212
  Serious: Yes (Other)
  Sender: FDA-Public Use
  Company Number: US-BEH-2014040607

PATIENT
  Age: 7 Year
  Sex: Female

DRUGS (3)
  1. HIZENTRA [Suspect]
     Indication: HYPOGAMMAGLOBULINAEMIA
     Route: 058
     Dates: start: 20140107
  2. HIZENTRA [Suspect]
     Indication: IMMUNODEFICIENCY
     Route: 058
     Dates: start: 20140116
  3. HIZENTRA [Suspect]
     Indication: SYDENHAM^S CHOREA
     Route: 058

REACTIONS (7)
  - Sydenham^s chorea [Recovered/Resolved]
  - Streptococcal infection [Not Recovered/Not Resolved]
  - Movement disorder [Recovered/Resolved]
  - Speech disorder [Not Recovered/Not Resolved]
  - Convulsion [Not Recovered/Not Resolved]
  - Nervous system disorder [Not Recovered/Not Resolved]
  - Headache [Not Recovered/Not Resolved]
